FAERS Safety Report 16978853 (Version 2)
Quarter: 2025Q3

REPORT INFORMATION
  Report Type: Report from Study
  Country: EU (occurrence: EU)
  Receive Date: 20191031
  Receipt Date: 20250703
  Transmission Date: 20251021
  Serious: Yes (Congenital Anomaly, Other)
  Sender: AUROBINDO
  Company Number: EU-MH-2019M1102766AA

PATIENT

DRUGS (5)
  1. CARBOPLATIN [Suspect]
     Active Substance: CARBOPLATIN
     Indication: Colorectal cancer
     Route: 064
  2. IRINOTECAN [Suspect]
     Active Substance: IRINOTECAN
     Indication: Colorectal cancer
     Route: 064
  3. OXALIPLATIN [Suspect]
     Active Substance: OXALIPLATIN
     Indication: Colorectal cancer
     Route: 064
  4. PACLITAXEL [Suspect]
     Active Substance: PACLITAXEL
     Indication: Colorectal cancer
     Route: 064
  5. FLUOROURACIL [Suspect]
     Active Substance: FLUOROURACIL
     Indication: Colorectal cancer
     Route: 064

REACTIONS (2)
  - Dilatation ventricular [Unknown]
  - Foetal exposure during pregnancy [Unknown]
